FAERS Safety Report 7387697-1 (Version None)
Quarter: 2011Q1

REPORT INFORMATION
  Report Type: 
  Country: None (occurrence: None)
  Receive Date: 20110331
  Receipt Date: 20110301
  Transmission Date: 20110831
  Serious: Yes (Other)
  Sender: FDA-Public Use
  Company Number: US-BAYER-201038429NA

PATIENT
  Sex: Female

DRUGS (9)
  1. OCELLA [Suspect]
     Indication: PRODUCT USED FOR UNKNOWN INDICATION
     Dates: start: 20030508
  2. UNCODEABLE ^UNCLASSIFIABLE^ [Concomitant]
     Route: 061
  3. UNCODEABLE ^UNCLASSIFIABLE^ [Concomitant]
  4. YAZ [Suspect]
     Indication: ACNE
     Dosage: UNK UNK, QD
     Dates: start: 20030508
  5. YASMIN [Suspect]
     Indication: ACNE
     Dosage: UNK UNK, QD
     Dates: start: 20030508
  6. UNCODEABLE ^UNCLASSIFIABLE^ [Concomitant]
  7. RETIN-A [Concomitant]
     Route: 061
  8. BACTRIM DS [Concomitant]
     Dosage: UNK UNK, BID
     Route: 048
  9. DIFFERIN [Concomitant]
     Route: 061

REACTIONS (1)
  - GALLBLADDER INJURY [None]
